FAERS Safety Report 7684198-8 (Version None)
Quarter: 2011Q3

REPORT INFORMATION
  Report Type: 
  Country: None (occurrence: None)
  Receive Date: 20110815
  Receipt Date: 20091012
  Transmission Date: 20111222
  Serious: Yes (Death, Hospitalization, Other)
  Sender: FDA-Public Use
  Company Number: US-BAYER-US-2007-006375

PATIENT
  Age: 43 Year
  Sex: Female
  Weight: 90.249 kg

DRUGS (51)
  1. MAGNEVIST [Suspect]
     Indication: NUCLEAR MAGNETIC RESONANCE IMAGING
     Route: 042
     Dates: start: 19990210, end: 19990210
  2. MAGNEVIST [Suspect]
     Dosage: UNK, 1 DOSE
     Route: 042
     Dates: start: 19990304, end: 19990304
  3. PREDNISONE [Concomitant]
  4. NEPHROCAPS [Concomitant]
  5. NOREPINEPHRINE BITARTRATE [Concomitant]
  6. MAGNEVIST [Suspect]
     Dosage: UNK, 1 DOSE
     Route: 042
     Dates: start: 19990328, end: 19990328
  7. MAGNEVIST [Suspect]
     Dosage: UNK UNK, ONCE
     Route: 042
     Dates: start: 20040618, end: 20040618
  8. TORSEMIDE [Concomitant]
  9. SEVELAMER HYDROCHLORIDE [Concomitant]
     Dosage: 800 MG, 3X/DAY
  10. PROCHLORPERAZINE EDISYLATE [Concomitant]
  11. INSULIN [Concomitant]
  12. OPTIMARK [Suspect]
     Indication: NUCLEAR MAGNETIC RESONANCE IMAGING
  13. MONTELUKAST SODIUM [Concomitant]
  14. MAGNEVIST [Suspect]
     Dosage: UNK, 1 DOSE
     Route: 042
     Dates: start: 19990320, end: 19990320
  15. GABAPENTIN [Concomitant]
     Dosage: 300 MG (DAILY DOSE), BID,
  16. TRIMETHOPRIM + SULFAMETHOXAZOLE [Concomitant]
  17. LORAZEPAM [Concomitant]
  18. FISH OIL [Concomitant]
     Dosage: UNK, UNK
  19. MAGNEVIST [Suspect]
     Dosage: UNK, 1 DOSE
     Route: 042
     Dates: start: 19990504, end: 19990504
  20. OPTIMARK [Suspect]
     Indication: ANGIOGRAM
  21. MULTIHANCE [Suspect]
     Indication: NUCLEAR MAGNETIC RESONANCE IMAGING
  22. POTASSIUM CHLORIDE [Concomitant]
  23. ALBUTEROL [Concomitant]
  24. HYDROCORTISONE [Concomitant]
  25. MIDODRINE HYDROCHLORIDE [Concomitant]
  26. LEVONORGESTREL [Concomitant]
  27. OMNISCAN [Suspect]
     Indication: ANGIOGRAM
  28. PROHANCE [Suspect]
     Indication: NUCLEAR MAGNETIC RESONANCE IMAGING
  29. PROHANCE [Suspect]
  30. ZOLOFT [Concomitant]
  31. EPOETIN ALFA [Concomitant]
     Dosage: UNK, 2X/WEEK
     Route: 058
  32. SENNA [SENNA ALEXANDRINA] [Concomitant]
     Dosage: UNK, UNK
  33. BISACODYL [Concomitant]
  34. AMIODARONE HCL [Concomitant]
  35. IPRATROPIUM BROMIDE [Concomitant]
  36. RANITIDINE HYDROCHLORIDE [Concomitant]
  37. HYDROMORPHONE HCL [Concomitant]
  38. ONDANSERTRON HYDROCHLORIDE [Concomitant]
  39. SEROQUEL [Concomitant]
  40. ESOMEPRAZOLE MAGNESIUM [Concomitant]
  41. MAGNEVIST [Suspect]
     Indication: ANGIOGRAM
     Dosage: UNK, 1 DOSE
     Route: 042
     Dates: start: 19990217, end: 19990217
  42. MAGNEVIST [Suspect]
     Dosage: NOTE: PT RECEIVED TOTAL OF 158 ML MAGNEVIST PRIOR TO SYMPTOM ONSET
     Route: 042
     Dates: start: 20000125, end: 20000125
  43. OMNISCAN [Suspect]
     Indication: NUCLEAR MAGNETIC RESONANCE IMAGING
  44. MULTIHANCE [Suspect]
     Indication: ANGIOGRAM
  45. WARFARIN SODIUM [Concomitant]
  46. FLUTICASONE PROPIONATE [Concomitant]
  47. EPOGEN [Concomitant]
  48. MAALOX [ALUMINIUM HYDROXIDE,MAGNESIUM HYDROXIDE] [Concomitant]
  49. VASOPRESSIN AND ANALOGUES [Concomitant]
  50. DARBEPOETIN ALFA [Concomitant]
     Dosage: 40 ?G, 1X/WEEK
     Route: 058
  51. LIDOCAINE [Concomitant]
     Dosage: UNK, UNK

REACTIONS (28)
  - EXCORIATION [None]
  - ENDOCARDIAL FIBROSIS [None]
  - MULTI-ORGAN FAILURE [None]
  - SKIN EXFOLIATION [None]
  - JOINT RANGE OF MOTION DECREASED [None]
  - SKIN FIBROSIS [None]
  - OEDEMA PERIPHERAL [None]
  - MOTOR DYSFUNCTION [None]
  - PAIN [None]
  - ANHEDONIA [None]
  - NEPHROGENIC SYSTEMIC FIBROSIS [None]
  - DRY SKIN [None]
  - PRURITUS [None]
  - SKIN HYPERPIGMENTATION [None]
  - JOINT CONTRACTURE [None]
  - SKIN TIGHTNESS [None]
  - SKIN HYPERTROPHY [None]
  - DEFORMITY [None]
  - BRONCHOPNEUMONIA [None]
  - ANXIETY [None]
  - SCAR [None]
  - EXTREMITY CONTRACTURE [None]
  - JOINT STIFFNESS [None]
  - ARTHRALGIA [None]
  - INTERSTITIAL LUNG DISEASE [None]
  - HYPOTENSION [None]
  - STASIS DERMATITIS [None]
  - SKIN INDURATION [None]
